FAERS Safety Report 24753473 (Version 1)
Quarter: 2024Q4

REPORT INFORMATION
  Report Type: Spontaneous
  Country: SE (occurrence: SE)
  Receive Date: 20241219
  Receipt Date: 20241219
  Transmission Date: 20250115
  Serious: Yes (Other)
  Sender: MYLAN
  Company Number: SE-ORIFARM-032417

PATIENT
  Age: 48 Year
  Sex: Male

DRUGS (1)
  1. SERTRALINE [Suspect]
     Active Substance: SERTRALINE HYDROCHLORIDE
     Indication: Depression
     Dosage: 150 MG, QD(150 MG X 1 (SERTRALINE TREATMENT BEFORE SYMPTOM ONSET FOR 3 YEARS AND DISCONTINUED 3 WK)
     Route: 065

REACTIONS (2)
  - Mitochondrial myopathy acquired [Unknown]
  - Muscular weakness [Unknown]
